FAERS Safety Report 4816505-5 (Version None)
Quarter: 2005Q4

REPORT INFORMATION
  Report Type: 
  Country: None (occurrence: None)
  Receive Date: 20051101
  Receipt Date: 20051020
  Transmission Date: 20060501
  Serious: Yes (Other)
  Sender: FDA-Public Use
  Company Number: PHHO2005NL16592

PATIENT
  Age: 36 Year

DRUGS (2)
  1. CGP 57148B [Suspect]
     Indication: CHRONIC MYELOID LEUKAEMIA
  2. ARA-C [Suspect]
     Indication: CHRONIC MYELOID LEUKAEMIA

REACTIONS (4)
  - ASTHENIA [None]
  - CEREBELLAR ATAXIA [None]
  - COORDINATION ABNORMAL [None]
  - MUSCLE ATROPHY [None]
